FAERS Safety Report 4805233-8 (Version None)
Quarter: 2005Q4

REPORT INFORMATION
  Report Type: 
  Country: None (occurrence: None)
  Receive Date: 20051020
  Receipt Date: 20050609
  Transmission Date: 20060501
  Serious: Yes (Hospitalization, Disabling)
  Sender: FDA-Public Use
  Company Number: US-MERCK-0506USA01474

PATIENT
  Age: 58 Year
  Sex: Male
  Weight: 91 kg

DRUGS (5)
  1. VIOXX [Suspect]
     Indication: GOUT
     Route: 048
     Dates: start: 20030201, end: 20030605
  2. VIOXX [Suspect]
     Indication: PAIN
     Route: 048
     Dates: start: 20030201, end: 20030605
  3. ALLOPURINOL [Concomitant]
     Indication: GOUT
     Route: 065
     Dates: start: 19800101
  4. ACTOS [Concomitant]
     Route: 065
  5. METFORMIN [Concomitant]
     Indication: DIABETES MELLITUS
     Route: 065

REACTIONS (8)
  - BLOOD CHOLESTEROL INCREASED [None]
  - BLOOD GLUCOSE INCREASED [None]
  - CEREBRAL HAEMORRHAGE [None]
  - CEREBRAL INFARCTION [None]
  - CEREBROVASCULAR ACCIDENT [None]
  - HYPERTENSION [None]
  - RENAL DISORDER [None]
  - VISION BLURRED [None]
